FAERS Safety Report 15540122 (Version 1)
Quarter: 2018Q4

REPORT INFORMATION
  Report Type: Spontaneous
  Country: FR (occurrence: FR)
  Receive Date: 20181023
  Receipt Date: 20181023
  Transmission Date: 20190205
  Serious: Yes (Hospitalization)
  Sender: FDA-Public Use
  Company Number: FR-SUN PHARMACEUTICAL INDUSTRIES LTD-2018RR-188519

PATIENT
  Age: 48 Year
  Sex: Female
  Weight: 62 kg

DRUGS (3)
  1. SERESTA 50 MG, COMPRIME SECABLE [Suspect]
     Active Substance: OXAZEPAM
     Indication: SUICIDE ATTEMPT
     Dosage: ()
     Route: 048
     Dates: start: 20180410, end: 20180410
  2. TERCIAN 40 MG/ML, SOLUTION BUVABLE EN GOUTTES [Suspect]
     Active Substance: CYAMEMAZINE
     Indication: SUICIDE ATTEMPT
     Dosage: ()
     Route: 048
     Dates: start: 20180410, end: 20180410
  3. PAROXETINE. [Suspect]
     Active Substance: PAROXETINE
     Indication: SUICIDE ATTEMPT
     Dosage: ()
     Route: 048
     Dates: start: 20180410, end: 20180410

REACTIONS (2)
  - Poisoning deliberate [Recovered/Resolved]
  - Somnolence [Recovered/Resolved]

NARRATIVE: CASE EVENT DATE: 20180410
